FAERS Safety Report 5251737-6 (Version None)
Quarter: 2007Q1

REPORT INFORMATION
  Report Type: 
  Country: None (occurrence: None)
  Receive Date: 20070228
  Receipt Date: 20061023
  Transmission Date: 20070707
  Serious: No
  Sender: FDA-Public Use
  Company Number: US-GLAXOSMITHKLINE-A0624560A

PATIENT
  Age: 52 Year
  Sex: Female

DRUGS (8)
  1. LAMICTAL [Suspect]
     Indication: BIPOLAR DISORDER
     Dosage: 25MG PER DAY
     Route: 048
     Dates: start: 20061018
  2. METFORMIN HCL [Concomitant]
  3. ALTACE [Concomitant]
  4. UNSPECIFIED MEDICATION [Concomitant]
  5. SYNTHROID [Concomitant]
  6. POTASSIUM ACETATE [Concomitant]
  7. FUROSAMIDE [Concomitant]
  8. EFFEXOR [Concomitant]

REACTIONS (1)
  - BLOOD GLUCOSE INCREASED [None]
